FAERS Safety Report 12820363 (Version 1)
Quarter: 2016Q4

REPORT INFORMATION
  Report Type: Report from Study
  Country: US (occurrence: US)
  Receive Date: 20161006
  Receipt Date: 20161006
  Transmission Date: 20170207
  Serious: No
  Sender: FDA-Public Use
  Company Number: US-AMGEN-USASL2015135478

PATIENT
  Age: 69 Year
  Sex: Female
  Weight: 79.37 kg

DRUGS (1)
  1. PROLIA [Suspect]
     Active Substance: DENOSUMAB
     Indication: OSTEOPOROSIS POSTMENOPAUSAL
     Dosage: 60 MG, Q6MO
     Route: 058
     Dates: start: 201311

REACTIONS (6)
  - Paraesthesia [Unknown]
  - Skin discolouration [Unknown]
  - Pain [Unknown]
  - Bone density abnormal [Unknown]
  - Skin disorder [Unknown]
  - Gastrointestinal disorder [Unknown]

NARRATIVE: CASE EVENT DATE: 2014
